FAERS Safety Report 17879345 (Version 1)
Quarter: 2020Q2

REPORT INFORMATION
  Report Type: Report from Study
  Country: MX (occurrence: MX)
  Receive Date: 20200610
  Receipt Date: 20200610
  Transmission Date: 20200714
  Serious: Yes (Hospitalization)
  Sender: FDA-Public Use
  Company Number: NVSC2020MX156537

PATIENT
  Age: 68 Year
  Sex: Female
  Weight: 52 kg

DRUGS (6)
  1. REGLUSAN [Concomitant]
     Indication: BLOOD GLUCOSE ABNORMAL
     Dosage: 5 MG, QD
     Route: 048
     Dates: start: 201706
  2. CONCOR [Concomitant]
     Active Substance: BISOPROLOL FUMARATE
     Indication: BLOOD PRESSURE INCREASED
     Dosage: 2.5 MG, QD
     Route: 048
     Dates: start: 202002
  3. LOSARTAN. [Concomitant]
     Active Substance: LOSARTAN
     Indication: BLOOD PRESSURE INCREASED
     Dosage: 50 MG, QD
     Route: 048
     Dates: start: 201706
  4. CONCOR [Concomitant]
     Active Substance: BISOPROLOL FUMARATE
     Indication: ATRIOVENTRICULAR BLOCK
  5. SIMVASTATIN. [Concomitant]
     Active Substance: SIMVASTATIN
     Indication: BLOOD CHOLESTEROL ABNORMAL
     Dosage: 10 MG, QD
     Route: 048
     Dates: start: 201706
  6. FEMARA [Suspect]
     Active Substance: LETROZOLE
     Indication: HORMONE LEVEL ABNORMAL
     Dosage: 2.5 MG, QD (EARLY FEB 2020)
     Route: 048
     Dates: start: 202002

REACTIONS (6)
  - Product use in unapproved indication [Unknown]
  - Bacterial infection [Recovered/Resolved]
  - Crying [Unknown]
  - Skin discolouration [Recovered/Resolved]
  - Post procedural infection [Recovered/Resolved]
  - Cardiovascular disorder [Recovered/Resolved]

NARRATIVE: CASE EVENT DATE: 202002
